FAERS Safety Report 20503436 (Version 1)
Quarter: 2022Q1

REPORT INFORMATION
  Report Type: Spontaneous
  Country: US (occurrence: None)
  Receive Date: 20220220
  Receipt Date: 20220220
  Transmission Date: 20220423
  Serious: No
  Sender: FDA-Public Use
  Company Number: None

PATIENT
  Age: 60 Year
  Sex: Female
  Weight: 57.6 kg

DRUGS (2)
  1. VICKS NYQUIL [Suspect]
     Active Substance: ACETAMINOPHEN\DEXTROMETHORPHAN HYDROBROMIDE\DOXYLAMINE SUCCINATE
     Indication: Nasopharyngitis
     Dosage: FREQUENCY : AT BEDTIME;?
     Route: 048
  2. VICKS NYQUIL [Suspect]
     Active Substance: ACETAMINOPHEN\DEXTROMETHORPHAN HYDROBROMIDE\DOXYLAMINE SUCCINATE
     Indication: Influenza

REACTIONS (8)
  - Product storage error [None]
  - Product outer packaging issue [None]
  - Product odour abnormal [None]
  - Dyspnoea [None]
  - Dyspnoea [None]
  - COVID-19 [None]
  - Gait inability [None]
  - Product contamination physical [None]

NARRATIVE: CASE EVENT DATE: 20220112
